FAERS Safety Report 5403393-1 (Version None)
Quarter: 2007Q3

REPORT INFORMATION
  Report Type: 
  Country: None (occurrence: None)
  Receive Date: 20070730
  Receipt Date: 20070713
  Transmission Date: 20080115
  Serious: Yes (Hospitalization)
  Sender: FDA-Public Use
  Company Number: FACT0700093

PATIENT
  Age: 25 Year
  Sex: Female

DRUGS (1)
  1. FACTIVE [Suspect]
     Indication: BRONCHITIS
     Dosage: 320 MG, QD
     Dates: start: 20070325, end: 20070330

REACTIONS (1)
  - ACARODERMATITIS [None]
